FAERS Safety Report 8094503-9 (Version None)
Quarter: 2012Q1

REPORT INFORMATION
  Report Type: 
  Country: None (occurrence: None)
  Receive Date: 20120131
  Receipt Date: 20120124
  Transmission Date: 20120608
  Serious: Yes (Other)
  Sender: FDA-Public Use
  Company Number: US-PFIZER INC-2012020099

PATIENT
  Sex: Female
  Weight: 68.481 kg

DRUGS (6)
  1. LYRICA [Suspect]
     Indication: FIBROMYALGIA
     Dosage: 75MG IN THE MORNING, 75MG IN THE AFTERNOON AND TWO 75MG CAPSULES AT NIGHT
     Route: 048
  2. XANAX [Concomitant]
     Dosage: 1 MG, AS NEEDED
  3. CLONAZEPAM [Concomitant]
     Dosage: 1 MG, 3X/DAY
  4. TRAMADOL [Concomitant]
     Indication: CEREBRAL DISORDER
     Dosage: 50 MG, 2X/DAY
  5. FOLIC ACID [Concomitant]
     Dosage: UNK, 1X/DAY
  6. HYDROCODONE [Concomitant]
     Indication: CEREBRAL DISORDER
     Dosage: UNK, AS NEEDED

REACTIONS (3)
  - PYREXIA [None]
  - MALAISE [None]
  - GOITRE [None]
